FAERS Safety Report 8399688-2 (Version None)
Quarter: 2012Q2

REPORT INFORMATION
  Report Type: 
  Country: None (occurrence: None)
  Receive Date: 20120531
  Receipt Date: 20120518
  Transmission Date: 20120825
  Serious: Yes (Death, Hospitalization, Other)
  Sender: FDA-Public Use
  Company Number: IT-TEVA-339948ISR

PATIENT
  Sex: Male

DRUGS (7)
  1. IFOSFAMIDE [Suspect]
     Indication: NON-HODGKIN'S LYMPHOMA
     Route: 042
     Dates: start: 20120210, end: 20120210
  2. MESNA [Concomitant]
     Indication: NON-HODGKIN'S LYMPHOMA
     Dosage: 400 MG/4 M
     Route: 042
     Dates: start: 20120210, end: 20120210
  3. ETOPOSIDE [Suspect]
     Indication: NON-HODGKIN'S LYMPHOMA
     Dosage: 100 MILLIGRAM;
     Route: 042
     Dates: start: 20120209, end: 20120211
  4. LASIX [Concomitant]
  5. ALLOPURINOL [Concomitant]
     Route: 061
  6. CARBOPLATIN [Suspect]
     Indication: NON-HODGKIN'S LYMPHOMA
     Dosage: 540 MILLIGRAM;
     Route: 042
     Dates: start: 20120210, end: 20120210
  7. DEXAMETHASONE SODIUM PHOSPHATE [Concomitant]
     Dosage: 8MG/2ML

REACTIONS (6)
  - PNEUMONIA CYTOMEGALOVIRAL [None]
  - HAEMANGIOMA OF LIVER [None]
  - LYMPHADENOPATHY [None]
  - STAPHYLOCOCCAL SEPSIS [None]
  - RESPIRATORY MONILIASIS [None]
  - FEBRILE NEUTROPENIA [None]
